FAERS Safety Report 9144647 (Version 1)
Quarter: 2013Q1

REPORT INFORMATION
  Report Type: Report from Study
  Country: US (occurrence: US)
  Receive Date: 20130306
  Receipt Date: 20130306
  Transmission Date: 20140127
  Serious: Yes (Other)
  Sender: FDA-Public Use
  Company Number: US-US-EMD SERONO, INC.-7186438

PATIENT
  Age: 60 None
  Sex: Female

DRUGS (2)
  1. REBIF [Suspect]
     Indication: PRODUCT USED FOR UNKNOWN INDICATION
     Route: 058
     Dates: start: 20090930, end: 201209
  2. REBIF [Suspect]
     Route: 058
     Dates: start: 20130201

REACTIONS (5)
  - Diverticulitis [Recovered/Resolved]
  - Diverticulum [Unknown]
  - Pernicious anaemia [Unknown]
  - Cluster headache [Unknown]
  - White blood cell count decreased [Unknown]
